FAERS Safety Report 13725321 (Version 1)
Quarter: 2017Q3

REPORT INFORMATION
  Report Type: Spontaneous
  Country: US (occurrence: US)
  Receive Date: 20170706
  Receipt Date: 20170706
  Transmission Date: 20171127
  Serious: Yes (Disabling)
  Sender: FDA-Public Use
  Company Number: None

PATIENT
  Age: 66 Year
  Sex: Female
  Weight: 62.1 kg

DRUGS (6)
  1. ESCITALOPRAM [Suspect]
     Active Substance: ESCITALOPRAM OXALATE
     Indication: ANXIETY
     Dosage: ?          QUANTITY:1 TABLET(S);?ORAL
     Route: 048
     Dates: start: 20130401, end: 20150831
  2. VITAMIN D [Concomitant]
     Active Substance: CHOLECALCIFEROL
  3. NATTOKINASE [Concomitant]
     Active Substance: NATTOKINASE
  4. VITAMIN C [Concomitant]
     Active Substance: ASCORBIC ACID
  5. VITAMIN B COMPLEX [Concomitant]
     Active Substance: CYANOCOBALAMIN\DEXPANTHENOL\NIACINAMIDE\PYRIDOXINE HYDROCHLORIDE\RIBOFLAVIN 5^-PHOSPHATE SODIUM\THIAMINE HYDROCHLORIDE\VITAMIN B COMPLEX
  6. KRILL OIL [Concomitant]
     Active Substance: DIETARY SUPPLEMENT

REACTIONS (21)
  - Neuralgia [None]
  - Suicidal ideation [None]
  - Abdominal distension [None]
  - Hallucination, visual [None]
  - Tremor [None]
  - Tachyphrenia [None]
  - Pain [None]
  - Flatulence [None]
  - Anger [None]
  - Depressed mood [None]
  - Pruritus [None]
  - Paraesthesia [None]
  - Insomnia [None]
  - Heart rate irregular [None]
  - Irritability [None]
  - Scratch [None]
  - Serotonin syndrome [None]
  - Somnolence [None]
  - Incontinence [None]
  - Hypoaesthesia [None]
  - Overdose [None]

NARRATIVE: CASE EVENT DATE: 20150901
